FAERS Safety Report 11392506 (Version 7)
Quarter: 2017Q1

REPORT INFORMATION
  Report Type: Report from Study
  Country: CO (occurrence: CO)
  Receive Date: 20150818
  Receipt Date: 20170316
  Transmission Date: 20170428
  Serious: Yes (Hospitalization, Other)
  Sender: FDA-Public Use
  Company Number: PHHY2015CO099810

PATIENT
  Age: 38 Year
  Sex: Female
  Weight: 51 kg

DRUGS (8)
  1. EXJADE [Suspect]
     Active Substance: DEFERASIROX
     Dosage: 500 MG, QD
     Route: 048
     Dates: start: 20140801
  2. FOLIC ACID. [Concomitant]
     Active Substance: FOLIC ACID
     Indication: SICKLE CELL ANAEMIA
     Dosage: 4 MG, QD
     Route: 065
  3. EXJADE [Suspect]
     Active Substance: DEFERASIROX
     Indication: SICKLE CELL ANAEMIA
     Dosage: 2 DF (10 MG/KG), QD
     Route: 048
  4. ERYTHROPOIETIN [Concomitant]
     Active Substance: ERYTHROPOIETIN
     Indication: PRODUCT USED FOR UNKNOWN INDICATION
     Dosage: UNK, QW2
     Route: 065
  5. HYDROXYUREA. [Concomitant]
     Active Substance: HYDROXYUREA
     Indication: PRODUCT USED FOR UNKNOWN INDICATION
     Dosage: 500 MG, QD
     Route: 065
  6. FERROUS SULFATE. [Concomitant]
     Active Substance: FERROUS SULFATE
     Indication: PRODUCT USED FOR UNKNOWN INDICATION
     Dosage: UNK UNK, QD
     Route: 065
  7. THIAMINE. [Concomitant]
     Active Substance: THIAMINE
     Indication: SICKLE CELL ANAEMIA
     Dosage: UNK UKN, QD
     Route: 065
  8. ASPIRETINA [Concomitant]
     Indication: PRODUCT USED FOR UNKNOWN INDICATION
     Dosage: UNK UKN, QD
     Route: 065

REACTIONS (14)
  - Haemoglobin decreased [Unknown]
  - Skin ulcer [Unknown]
  - Vomiting [Not Recovered/Not Resolved]
  - Osteomyelitis [Recovered/Resolved]
  - General physical health deterioration [Recovered/Resolved]
  - Depression [Unknown]
  - Platelet count decreased [Unknown]
  - Peripheral vascular disorder [Unknown]
  - Headache [Unknown]
  - Acne [Recovering/Resolving]
  - Impaired healing [Unknown]
  - Insomnia [Unknown]
  - Hypersensitivity [Recovered/Resolved]
  - Swelling face [Unknown]

NARRATIVE: CASE EVENT DATE: 20170203
